FAERS Safety Report 6987888-5 (Version None)
Quarter: 2010Q3

REPORT INFORMATION
  Report Type: 
  Country: None (occurrence: None)
  Receive Date: 20100916
  Receipt Date: 20100625
  Transmission Date: 20110219
  Serious: No
  Sender: FDA-Public Use
  Company Number: US-ABBOTT-10P-163-0654009-00

PATIENT
  Sex: Male
  Weight: 71.732 kg

DRUGS (3)
  1. TRILIPIX [Suspect]
     Indication: HYPERCHOLESTEROLAEMIA
     Dates: start: 20090901, end: 20100201
  2. TRILIPIX [Suspect]
     Dates: start: 20100201
  3. PRAVASTATIN [Concomitant]
     Indication: PRODUCT USED FOR UNKNOWN INDICATION

REACTIONS (2)
  - MUSCLE SPASMS [None]
  - MYALGIA [None]
